FAERS Safety Report 9306114 (Version 1)
Quarter: 2013Q2

REPORT INFORMATION
  Report Type: Spontaneous
  Country: AU (occurrence: AU)
  Receive Date: 20130523
  Receipt Date: 20130523
  Transmission Date: 20140414
  Serious: Yes (Other)
  Sender: FDA-Public Use
  Company Number: AU-ROCHE-1227971

PATIENT
  Sex: Female

DRUGS (13)
  1. HERCEPTIN [Suspect]
     Indication: BREAST CANCER METASTATIC
     Route: 065
     Dates: start: 201007
  2. HERCEPTIN [Suspect]
     Route: 065
     Dates: start: 201202
  3. HERCEPTIN [Suspect]
     Route: 065
     Dates: end: 201304
  4. XELODA [Suspect]
     Indication: BREAST CANCER METASTATIC
     Route: 065
     Dates: start: 201107
  5. DOCETAXEL [Concomitant]
     Indication: BREAST CANCER METASTATIC
     Route: 065
     Dates: start: 201007
  6. TYKERB [Concomitant]
     Indication: BREAST CANCER METASTATIC
     Route: 065
     Dates: start: 201107
  7. VINORELBINE [Concomitant]
     Indication: BREAST CANCER METASTATIC
     Route: 065
     Dates: start: 201202
  8. DOXORUBICIN [Concomitant]
     Indication: BREAST CANCER METASTATIC
     Route: 065
     Dates: start: 201205
  9. CARBOPLATIN [Concomitant]
     Indication: BREAST CANCER METASTATIC
     Route: 065
     Dates: end: 201304
  10. GEMCITABINE [Concomitant]
     Indication: BREAST CANCER METASTATIC
     Route: 065
     Dates: end: 201304
  11. CYCLOPHOSPHAMIDE [Concomitant]
     Indication: BREAST CANCER METASTATIC
     Route: 042
  12. METHOTREXATE [Concomitant]
     Indication: BREAST CANCER METASTATIC
     Route: 042
  13. FLUOROURACIL [Concomitant]
     Indication: BREAST CANCER METASTATIC
     Route: 042

REACTIONS (1)
  - Disease progression [Unknown]
